FAERS Safety Report 14219584 (Version 3)
Quarter: 2017Q4

REPORT INFORMATION
  Report Type: Report from Study
  Country: None (occurrence: US)
  Receive Date: 20171123
  Receipt Date: 20171229
  Transmission Date: 20180321
  Serious: Yes (Hospitalization)
  Sender: FDA-Public Use
  Company Number: US-ABBVIE-17K-163-2170915-00

PATIENT
  Age: 25 Year
  Sex: Male
  Weight: 70.37 kg

DRUGS (2)
  1. FOLIC ACID. [Concomitant]
     Active Substance: FOLIC ACID
     Indication: PRODUCT USED FOR UNKNOWN INDICATION
  2. HUMIRA [Suspect]
     Active Substance: ADALIMUMAB
     Indication: CROHN^S DISEASE
     Route: 058
     Dates: start: 2012, end: 201711

REACTIONS (10)
  - Staphylococcal infection [Recovering/Resolving]
  - Pyrexia [Recovered/Resolved]
  - Secondary immunodeficiency [Unknown]
  - Skin bacterial infection [Not Recovered/Not Resolved]
  - Liver abscess [Recovering/Resolving]
  - Pain [Not Recovered/Not Resolved]
  - Hepatomegaly [Not Recovered/Not Resolved]
  - Hepatic cyst [Not Recovered/Not Resolved]
  - Chromaturia [Recovered/Resolved]
  - Unresponsive to stimuli [Not Recovered/Not Resolved]

NARRATIVE: CASE EVENT DATE: 201711
